FAERS Safety Report 7461129-7 (Version None)
Quarter: 2011Q2

REPORT INFORMATION
  Report Type: 
  Country: None (occurrence: None)
  Receive Date: 20110505
  Receipt Date: 20110428
  Transmission Date: 20111010
  Serious: Yes (Hospitalization)
  Sender: FDA-Public Use
  Company Number: BE-ABBOTT-11P-013-0722348-00

PATIENT
  Sex: Male

DRUGS (12)
  1. TAMSULOSIN HCL [Concomitant]
     Indication: BENIGN PROSTATIC HYPERPLASIA
  2. OXYBUTYNIN [Concomitant]
     Indication: URGE INCONTINENCE
     Route: 048
     Dates: start: 20090608
  3. OMEPRAZOLE [Concomitant]
     Indication: OESOPHAGITIS
     Route: 048
     Dates: start: 20000101
  4. SEROXAT [Concomitant]
     Indication: DEPRESSION
     Route: 048
     Dates: start: 20070101
  5. HUMIRA [Suspect]
     Indication: CROHN'S DISEASE
     Route: 058
     Dates: start: 20080801
  6. LIPITOR [Concomitant]
     Indication: HYPERLIPIDAEMIA
     Route: 048
  7. CO RENITEC [Concomitant]
     Indication: HYPERTENSION
     Dosage: 20/12.5
     Route: 048
  8. TAMSULOSIN HCL [Concomitant]
     Indication: URGE INCONTINENCE
     Route: 048
     Dates: start: 20090608
  9. OXYBUTYNIN [Concomitant]
     Indication: BENIGN PROSTATIC HYPERPLASIA
  10. COCURO [Concomitant]
     Indication: ANGINA PECTORIS
     Route: 048
     Dates: start: 20101129
  11. IMODIUM [Concomitant]
     Indication: DIARRHOEA
     Route: 048
     Dates: start: 20060101
  12. PENTASA [Concomitant]
     Indication: CROHN'S DISEASE
     Route: 048
     Dates: start: 20070427

REACTIONS (2)
  - PULMONARY EMBOLISM [None]
  - DYSPNOEA [None]
